FAERS Safety Report 7287362-5 (Version None)
Quarter: 2011Q1

REPORT INFORMATION
  Report Type: 
  Country: None (occurrence: None)
  Receive Date: 20110211
  Receipt Date: 20110202
  Transmission Date: 20110831
  Serious: Yes (Other)
  Sender: FDA-Public Use
  Company Number: US-JNJFOC-20110202361

PATIENT
  Sex: Female
  Weight: 79.38 kg

DRUGS (9)
  1. CLOZAPINE [Concomitant]
     Indication: PANIC ATTACK
     Dosage: AS NEEDED 2 TO 3 TIMES DAILY
     Route: 048
  2. ADVAIR [Concomitant]
     Indication: CHRONIC OBSTRUCTIVE PULMONARY DISEASE
     Dosage: 2 PUFFS DAILY
     Route: 055
  3. FLUOXETINE [Concomitant]
     Indication: DEPRESSION
     Route: 048
  4. FENTANYL-100 [Suspect]
     Indication: BACK PAIN
     Dosage: NDC: 0781-7243-55
     Route: 062
  5. BACLOFEN [Concomitant]
     Indication: DYSKINESIA
     Route: 065
  6. CYCLOBENZAPRINE [Concomitant]
     Indication: DYSKINESIA
     Route: 048
  7. FUROSEMIDE [Concomitant]
     Indication: DIURETIC THERAPY
     Dosage: 2 TABLETS THREE TIMES DAILY
     Route: 048
  8. POTASSIUM [Concomitant]
     Indication: NUTRITIONAL SUPPORT
     Dosage: 2 TABLETS THREE TIMES DAILY
     Route: 048
  9. AMBIEN [Concomitant]
     Indication: SLEEP DISORDER THERAPY
     Dosage: AS NEEDED
     Route: 048

REACTIONS (9)
  - GENERALISED OEDEMA [None]
  - HYPERTENSION [None]
  - APPLICATION SITE PRURITUS [None]
  - WRONG TECHNIQUE IN DRUG USAGE PROCESS [None]
  - APPLICATION SITE RASH [None]
  - FALL [None]
  - PRODUCT QUALITY ISSUE [None]
  - WEIGHT INCREASED [None]
  - PAIN [None]
